FAERS Safety Report 11354439 (Version 1)
Quarter: 2015Q3

REPORT INFORMATION
  Report Type: Spontaneous
  Country: US (occurrence: US)
  Receive Date: 20150807
  Receipt Date: 20150807
  Transmission Date: 20151125
  Serious: No
  Sender: FDA-Public Use
  Company Number: US-JNJFOC-20141019163

PATIENT
  Age: 73 Year
  Sex: Female
  Weight: 53.07 kg

DRUGS (1)
  1. CHILDRENS SUDAFED NASAL DECONGESTANT [Suspect]
     Active Substance: PSEUDOEPHEDRINE HYDROCHLORIDE
     Indication: EYE PAIN
     Route: 048

REACTIONS (3)
  - Therapeutic response unexpected [Unknown]
  - Wrong drug administered [Unknown]
  - Product use issue [Unknown]
